FAERS Safety Report 11861591 (Version 1)
Quarter: 2015Q4

REPORT INFORMATION
  Report Type: Spontaneous
  Country: US (occurrence: US)
  Receive Date: 20151222
  Receipt Date: 20151222
  Transmission Date: 20160305
  Serious: Yes (Other)
  Sender: FDA-Public Use
  Company Number: US-PFIZER INC-2015461889

PATIENT
  Age: 60 Year
  Sex: Female

DRUGS (1)
  1. LEVOTHYROXINE SODIUM. [Suspect]
     Active Substance: LEVOTHYROXINE SODIUM
     Indication: HYPOTHYROIDISM
     Dosage: UNK
     Dates: start: 2011

REACTIONS (3)
  - Blood test abnormal [Recovered/Resolved]
  - Fatigue [Recovered/Resolved]
  - Autoimmune thyroiditis [Recovered/Resolved]

NARRATIVE: CASE EVENT DATE: 2011
